FAERS Safety Report 19890490 (Version 7)
Quarter: 2022Q3

REPORT INFORMATION
  Report Type: Report from Study
  Country: CA (occurrence: CA)
  Receive Date: 20210927
  Receipt Date: 20220819
  Transmission Date: 20221027
  Serious: Yes (Other)
  Sender: FDA-Public Use
  Company Number: CA-TAKEDA-CA202017146

PATIENT
  Age: 36 Year
  Sex: Female

DRUGS (3)
  1. LANADELUMAB [Suspect]
     Active Substance: LANADELUMAB
     Indication: Hereditary angioedema with C1 esterase inhibitor deficiency
     Dosage: 300 MILLIGRAM, Q2WEEKS
     Route: 058
     Dates: start: 20200428
  2. BERINERT [Concomitant]
     Active Substance: HUMAN C1-ESTERASE INHIBITOR
     Dosage: 1000 INTERNATIONAL UNIT, EVERY 2-3 DAYS
     Route: 065
     Dates: end: 20200428
  3. BERINERT [Concomitant]
     Active Substance: HUMAN C1-ESTERASE INHIBITOR
     Dosage: 1500 INTERNATIONAL UNIT
     Route: 065

REACTIONS (16)
  - Hereditary angioedema [Recovering/Resolving]
  - Stress [Recovering/Resolving]
  - Abdominal pain upper [Unknown]
  - Nausea [Unknown]
  - Cough [Not Recovered/Not Resolved]
  - Ophthalmic migraine [Unknown]
  - Depressed mood [Not Recovered/Not Resolved]
  - Malaise [Not Recovered/Not Resolved]
  - Migraine [Not Recovered/Not Resolved]
  - Injection site bruising [Unknown]
  - Product leakage [Unknown]
  - Injection site haemorrhage [Unknown]
  - Injection site pain [Unknown]
  - Inappropriate schedule of product administration [Unknown]
  - Product dose omission issue [Not Recovered/Not Resolved]
  - Product storage error [Not Recovered/Not Resolved]

NARRATIVE: CASE EVENT DATE: 20210608
